FAERS Safety Report 14940258 (Version 2)
Quarter: 2018Q4

REPORT INFORMATION
  Report Type: Report from Study
  Country: JP (occurrence: JP)
  Receive Date: 20180525
  Receipt Date: 20181228
  Transmission Date: 20190204
  Serious: Yes (Hospitalization)
  Sender: FDA-Public Use
  Company Number: JP-SA-2018SA025072

PATIENT
  Age: 44 Year
  Sex: Male
  Weight: 64 kg

DRUGS (10)
  1. DUPILUMAB [Suspect]
     Active Substance: DUPILUMAB
     Dosage: 300 MG, QOW
     Route: 058
     Dates: start: 20161210
  2. HIRUDOID [Concomitant]
     Active Substance: GLYCOSAMINOGLYCANS
     Indication: ECZEMA ASTEATOTIC
     Route: 062
     Dates: start: 20171125, end: 20171127
  3. HIRUDOID [Concomitant]
     Active Substance: GLYCOSAMINOGLYCANS
     Route: 062
     Dates: start: 20171128
  4. LOXOPROFEN [LOXOPROFEN SODIUM] [Concomitant]
     Active Substance: LOXOPROFEN SODIUM
     Indication: ANALGESIC THERAPY
     Dosage: UNK MG
     Route: 048
     Dates: start: 20180129
  5. FLUTICASONE PROPIONATE/SALMETEROL XINAFOATE [Suspect]
     Active Substance: FLUTICASONE PROPIONATE\SALMETEROL XINAFOATE
     Dosage: 500 MG, BID
     Route: 055
     Dates: start: 20150627, end: 20161127
  6. FLUTICASONE PROPIONATE/SALMETEROL XINAFOATE [Suspect]
     Active Substance: FLUTICASONE PROPIONATE\SALMETEROL XINAFOATE
     Dosage: 500 MG, BID
     Route: 055
     Dates: start: 20161128
  7. DUPILUMAB [Suspect]
     Active Substance: DUPILUMAB
     Indication: ASTHMA
     Dosage: 300 MG, 1X
     Route: 058
     Dates: start: 20161128, end: 20161128
  8. FLOMOX [CEFCAPENE PIVOXIL HYDROCHLORIDE] [Concomitant]
     Indication: INFECTION PROPHYLAXIS
     Dosage: UNK MG
     Route: 048
     Dates: start: 20180124
  9. REBAMIPIDE [Concomitant]
     Active Substance: REBAMIPIDE
     Indication: PROPHYLAXIS
     Dosage: UNK MG
     Route: 048
     Dates: start: 20180129
  10. CEFAZOLIN NA [Concomitant]
     Active Substance: CEFAZOLIN SODIUM
     Indication: INFECTION PROPHYLAXIS
     Dosage: UNK G
     Route: 042
     Dates: start: 20180129

REACTIONS (1)
  - Hand fracture [Recovered/Resolved]

NARRATIVE: CASE EVENT DATE: 20180124
